FAERS Safety Report 4887694-1 (Version None)
Quarter: 2006Q1

REPORT INFORMATION
  Report Type: 
  Country: None (occurrence: None)
  Receive Date: 20060118
  Receipt Date: 20040112
  Transmission Date: 20060701
  Serious: Yes (Hospitalization, Disabling)
  Sender: FDA-Public Use
  Company Number: A044-002-005906

PATIENT
  Age: 98 Year
  Sex: Male

DRUGS (5)
  1. ARICEPT [Suspect]
     Indication: MEMORY IMPAIRMENT
     Dosage: 1 MG, 1 IN 1 D{ ORAL
     Route: 048
     Dates: start: 20051025, end: 20060102
  2. TRIMETAZIDINE (TRIMETAZIDINE HYDROCHLORIDE) [Concomitant]
  3. SERENOA REPENS (SERENOA REPENS) [Concomitant]
  4. AFRICA PLUM TREE EXTRACT (PYGEUM AFRICANUM) [Concomitant]
  5. SPIRONOLACTONE (ALDACTAZINE) [Concomitant]

REACTIONS (4)
  - CONFUSIONAL STATE [None]
  - FALL [None]
  - HALLUCINATION [None]
  - OBSESSIVE THOUGHTS [None]
